FAERS Safety Report 24934891 (Version 12)
Quarter: 2025Q4

REPORT INFORMATION
  Report Type: Spontaneous
  Country: US (occurrence: US)
  Receive Date: 20250206
  Receipt Date: 20251230
  Transmission Date: 20260117
  Serious: No
  Sender: KARYOPHARM THERAPEUTICS
  Company Number: US-KARYOPHARM-2025KPT000118

PATIENT

DRUGS (15)
  1. XPOVIO [Suspect]
     Active Substance: SELINEXOR
     Indication: Plasma cell myeloma
     Dosage: 40 MG WEEKLY 3 WEEKS ON AND 1 WEEK OFF
     Route: 048
     Dates: start: 20250129
  2. XPOVIO [Suspect]
     Active Substance: SELINEXOR
     Dosage: 40 MG ON WEDNESDAYS EVERY OTHER WEEK
     Route: 048
     Dates: start: 2025, end: 2025
  3. XPOVIO [Suspect]
     Active Substance: SELINEXOR
     Dosage: 40 MG WEEKLY
     Route: 048
     Dates: start: 2025
  4. XPOVIO [Suspect]
     Active Substance: SELINEXOR
     Dosage: 30 MG EVERY OTHER WEEK
     Route: 048
     Dates: start: 2025
  5. ACYCLOVIR [Concomitant]
     Active Substance: ACYCLOVIR
  6. AMLODIPINE [Concomitant]
     Active Substance: AMLODIPINE BESYLATE
  7. DULOXETINE [Concomitant]
     Active Substance: DULOXETINE
  8. FINASTERIDE [Concomitant]
     Active Substance: FINASTERIDE
  9. OXYCODONE [Concomitant]
     Active Substance: OXYCODONE
  10. ROSUVASTATIN [Concomitant]
     Active Substance: ROSUVASTATIN
  11. SYMBICORT [Concomitant]
     Active Substance: BUDESONIDE\FORMOTEROL FUMARATE DIHYDRATE
  12. SULFAMETHOXAZOLE AND TRIMETHOPRIM [Concomitant]
     Active Substance: SULFAMETHOXAZOLE\TRIMETHOPRIM
  13. OXYCODONE AND ACETAMINOPHEN [Concomitant]
     Active Substance: ACETAMINOPHEN\OXYCODONE HYDROCHLORIDE
  14. TAMSULOSIN [Concomitant]
     Active Substance: TAMSULOSIN
  15. BACTRIM [Concomitant]
     Active Substance: SULFAMETHOXAZOLE\TRIMETHOPRIM

REACTIONS (12)
  - Laboratory test abnormal [Unknown]
  - Fall [Not Recovered/Not Resolved]
  - Musculoskeletal chest pain [Unknown]
  - Chest injury [Unknown]
  - Head injury [Unknown]
  - Periorbital injury [Unknown]
  - Balance disorder [Unknown]
  - Dizziness [Not Recovered/Not Resolved]
  - Fatigue [Not Recovered/Not Resolved]
  - Nausea [Recovered/Resolved]
  - Off label use [Unknown]
  - Product dose omission issue [Unknown]

NARRATIVE: CASE EVENT DATE: 20250101
